FAERS Safety Report 5262613-7 (Version None)
Quarter: 2007Q1

REPORT INFORMATION
  Report Type: 
  Country: None (occurrence: None)
  Receive Date: 20070312
  Receipt Date: 20070228
  Transmission Date: 20070707
  Serious: Yes (Life-Threatening, Hospitalization)
  Sender: FDA-Public Use
  Company Number: HQWYE398112FEB07

PATIENT
  Age: 65 Year
  Sex: Male
  Weight: 47 kg

DRUGS (16)
  1. ANCARON [Suspect]
     Indication: VENTRICULAR TACHYCARDIA
     Route: 048
     Dates: start: 20010401, end: 20010417
  2. ANCARON [Suspect]
     Route: 048
     Dates: start: 20010418, end: 20010501
  3. ANCARON [Suspect]
     Route: 048
     Dates: start: 20010502, end: 20010510
  4. ACECOL [Concomitant]
     Indication: HYPERTROPHIC CARDIOMYOPATHY
     Dosage: 1 MG FREQUENCY NOT PROVIDED
     Route: 048
     Dates: start: 20010502, end: 20010509
  5. SHINBIT [Concomitant]
     Indication: VENTRICULAR TACHYCARDIA
     Dosage: 0.25 MG/KG/HOUR
     Route: 042
     Dates: start: 20010303, end: 20010307
  6. SHINBIT [Concomitant]
     Dosage: .35 MG/KG/HOUR
     Route: 042
     Dates: start: 20010308, end: 20010327
  7. SHINBIT [Concomitant]
     Dosage: 0.1 MG/KG/HOUR
     Route: 042
     Dates: start: 20010328, end: 20010607
  8. DIGOXIN [Concomitant]
     Indication: ATRIAL FLUTTER
     Dosage: 0.25 MG FREQUENCY NOT PROVIDED
     Route: 042
  9. PREDNISOLONE [Concomitant]
     Dosage: NOT PROVIDED
     Route: 065
     Dates: start: 20010311, end: 20010601
  10. ENALAPRIL MALEATE [Concomitant]
     Indication: HYPERTROPHIC CARDIOMYOPATHY
     Dosage: 10 MG FREQUENCY NOT PROVIDED
     Route: 065
  11. EUGLUCAN [Concomitant]
     Route: 048
     Dates: start: 20010502, end: 20010509
  12. BASEN [Concomitant]
     Route: 048
     Dates: start: 20010502, end: 20010509
  13. ALLOPURINOL [Concomitant]
     Route: 048
     Dates: start: 20010502, end: 20010509
  14. ACINON [Concomitant]
     Route: 048
     Dates: start: 20010502, end: 20010509
  15. FUROSEMIDE [Concomitant]
     Indication: HYPERTROPHIC CARDIOMYOPATHY
     Dosage: 40 MG FREQUENCY NOT PROVIDED
     Route: 065
     Dates: start: 19950101, end: 20010306
  16. CIPRALAN [Concomitant]
     Indication: ATRIAL FLUTTER
     Dosage: 70 MG FREQUENCY NOT PROVIDED
     Route: 042

REACTIONS (5)
  - CARDIAC FAILURE [None]
  - CONDITION AGGRAVATED [None]
  - DRUG EFFECT DECREASED [None]
  - INTERSTITIAL LUNG DISEASE [None]
  - PNEUMONIA [None]
